FAERS Safety Report 8996717 (Version 1)
Quarter: 2012Q4

REPORT INFORMATION
  Report Type: Spontaneous
  Country: US (occurrence: None)
  Receive Date: 20121228
  Receipt Date: 20121228
  Transmission Date: 20130627
  Serious: Yes (Hospitalization, Disabling, Other)
  Sender: FDA-Public Use
  Company Number: None

PATIENT
  Age: 69 Year
  Sex: Female
  Weight: 54.43 kg

DRUGS (1)
  1. FOSAMAX [Suspect]

REACTIONS (3)
  - Femur fracture [None]
  - Tibia fracture [None]
  - Stress fracture [None]
